FAERS Safety Report 4677315-5 (Version None)
Quarter: 2005Q2

REPORT INFORMATION
  Report Type: 
  Country: None (occurrence: None)
  Receive Date: 20050531
  Receipt Date: 20050520
  Transmission Date: 20051028
  Serious: Yes (Hospitalization)
  Sender: FDA-Public Use
  Company Number: 200511476JP

PATIENT
  Age: 75 Year
  Sex: Female

DRUGS (1)
  1. TAXOTERE [Suspect]
     Route: 041

REACTIONS (3)
  - BLINDNESS CORTICAL [None]
  - OPTIC NERVE DISORDER [None]
  - OPTIC NEURITIS RETROBULBAR [None]
